FAERS Safety Report 4638076-9 (Version None)
Quarter: 2005Q2

REPORT INFORMATION
  Report Type: 
  Country: None (occurrence: None)
  Receive Date: 20050415
  Receipt Date: 20050331
  Transmission Date: 20051028
  Serious: Yes (Other)
  Sender: FDA-Public Use
  Company Number: USA050188038

PATIENT
  Age: 65 Year
  Sex: Female

DRUGS (5)
  1. STRATTERA [Suspect]
     Indication: ATTENTION DEFICIT/HYPERACTIVITY DISORDER
     Dosage: 60 MG DAY
     Dates: start: 20041022, end: 20050107
  2. EFFEXOR XR [Concomitant]
  3. DIFLUCAN [Concomitant]
  4. SYNTHROID [Concomitant]
  5. MOEXIPRIL HCL [Concomitant]

REACTIONS (6)
  - ADRENAL INSUFFICIENCY [None]
  - DIZZINESS [None]
  - FALL [None]
  - HEADACHE [None]
  - MALIGNANT HYPERTENSION [None]
  - RENAL DISORDER [None]
